FAERS Safety Report 14670522 (Version 1)
Quarter: 2018Q1

REPORT INFORMATION
  Report Type: Spontaneous
  Country: CA (occurrence: CA)
  Receive Date: 20180322
  Receipt Date: 20180322
  Transmission Date: 20180509
  Serious: Yes (Life-Threatening, Other)
  Sender: FDA-Public Use
  Company Number: CA-BAYER-2018-051732

PATIENT
  Age: 51 Year
  Sex: Female
  Weight: 58.96 kg

DRUGS (2)
  1. MIRENA [Suspect]
     Active Substance: LEVONORGESTREL
     Indication: CONTRACEPTION
     Dosage: 20 MCG/24HR, CONT
     Route: 015
  2. MIRENA [Suspect]
     Active Substance: LEVONORGESTREL
     Indication: CONTRACEPTION

REACTIONS (13)
  - Nausea [Recovering/Resolving]
  - Angioplasty [Recovering/Resolving]
  - Emotional disorder [Recovering/Resolving]
  - Myocardial infarction [Recovering/Resolving]
  - Urinary tract infection [Recovering/Resolving]
  - Visual impairment [Recovering/Resolving]
  - Diarrhoea [Recovering/Resolving]
  - Cognitive disorder [Recovering/Resolving]
  - Abdominal pain [Recovering/Resolving]
  - Libido decreased [Recovering/Resolving]
  - Pelvic pain [Recovering/Resolving]
  - Nervousness [Recovering/Resolving]
  - Weight increased [Recovering/Resolving]
